FAERS Safety Report 21744943 (Version 1)
Quarter: 2022Q4

REPORT INFORMATION
  Report Type: Spontaneous
  Country: US (occurrence: US)
  Receive Date: 20221219
  Receipt Date: 20221219
  Transmission Date: 20230112
  Serious: Yes (Hospitalization)
  Sender: FDA-Public Use
  Company Number: US-STRIDES ARCOLAB LIMITED-2022SP016214

PATIENT
  Age: 59 Year
  Sex: Male

DRUGS (5)
  1. DOXORUBICIN [Suspect]
     Active Substance: DOXORUBICIN
     Indication: Enteropathy-associated T-cell lymphoma
     Dosage: UNK (CHOEP REGIMEN)
     Route: 065
  2. ETOPOSIDE [Suspect]
     Active Substance: ETOPOSIDE
     Indication: Enteropathy-associated T-cell lymphoma
     Dosage: UNK (CHOEP REGIMEN)
     Route: 065
  3. PREDNISOLONE [Suspect]
     Active Substance: PREDNISOLONE
     Indication: Enteropathy-associated T-cell lymphoma
     Dosage: UNK (CHOEP REGIMEN)
     Route: 065
  4. VINCRISTINE [Suspect]
     Active Substance: VINCRISTINE
     Indication: Enteropathy-associated T-cell lymphoma
     Dosage: UNK (CHOEP REGIMEN)
     Route: 065
  5. CYCLOPHOSPHAMIDE [Suspect]
     Active Substance: CYCLOPHOSPHAMIDE
     Indication: Enteropathy-associated T-cell lymphoma
     Dosage: UNK (CHOEP REGIMEN)
     Route: 065

REACTIONS (1)
  - Drug ineffective [Unknown]
